FAERS Safety Report 4531327-0 (Version None)
Quarter: 2004Q4

REPORT INFORMATION
  Report Type: 
  Country: None (occurrence: None)
  Receive Date: 20041206
  Receipt Date: 20041025
  Transmission Date: 20050328
  Serious: No
  Sender: FDA-Public Use
  Company Number: USA040978138

PATIENT
  Age: 49 Year
  Sex: Female
  Weight: 57 kg

DRUGS (5)
  1. CYMBALTA [Suspect]
     Indication: DEPRESSION
     Dosage: 20 MG/ 3 DAY
     Dates: start: 20040906
  2. REMERON [Concomitant]
  3. KLONOPIN [Concomitant]
  4. NEURONTIN (GABAPENTIN PFIZER) [Concomitant]
  5. SEROQUEL [Concomitant]

REACTIONS (7)
  - AGITATION [None]
  - ANXIETY [None]
  - CONSTIPATION [None]
  - DECREASED APPETITE [None]
  - DRUG INEFFECTIVE [None]
  - DRY MOUTH [None]
  - PSYCHOMOTOR HYPERACTIVITY [None]
